FAERS Safety Report 15417126 (Version 1)
Quarter: 2018Q3

REPORT INFORMATION
  Report Type: Spontaneous
  Country: US (occurrence: US)
  Receive Date: 20180924
  Receipt Date: 20180924
  Transmission Date: 20181010
  Serious: No
  Sender: FDA-Public Use
  Company Number: CN-ASTRAZENECA-2018SF22740

PATIENT
  Age: 92 Year
  Sex: Male

DRUGS (2)
  1. NEXIUM 24HR [Suspect]
     Active Substance: ESOMEPRAZOLE MAGNESIUM
     Indication: DYSPEPSIA
     Dosage: UNK
     Route: 048
  2. NEXIUM 24HR [Suspect]
     Active Substance: ESOMEPRAZOLE MAGNESIUM
     Indication: FAECES HARD
     Dosage: UNK
     Route: 048

REACTIONS (3)
  - Pre-existing condition improved [Unknown]
  - Intentional product misuse [Unknown]
  - Therapeutic response unexpected [Unknown]
